FAERS Safety Report 15976090 (Version 3)
Quarter: 2019Q2

REPORT INFORMATION
  Report Type: Report from Study
  Country: US (occurrence: US)
  Receive Date: 20190218
  Receipt Date: 20190620
  Transmission Date: 20190711
  Serious: Yes (Other)
  Sender: FDA-Public Use
  Company Number: US-MYLANLABS-2019M1013686

PATIENT
  Sex: Female
  Weight: 85 kg

DRUGS (2)
  1. ALEVE [Concomitant]
     Active Substance: NAPROXEN SODIUM
     Dosage: UNK
  2. GLATIRAMER ACETATE INJECTION [Suspect]
     Active Substance: GLATIRAMER ACETATE
     Indication: MULTIPLE SCLEROSIS
     Dosage: 40 MILLIGRAM, Q3W (40MG 3X PER WEEK)
     Route: 058

REACTIONS (10)
  - Urinary incontinence [Recovered/Resolved]
  - Drug ineffective [Unknown]
  - Fall [Unknown]
  - Product lot number issue [Recovered/Resolved]
  - Gait disturbance [Unknown]
  - Nasopharyngitis [Not Recovered/Not Resolved]
  - Hemiplegia [Not Recovered/Not Resolved]
  - Choking [Unknown]
  - Cough [Recovered/Resolved]
  - Progressive multiple sclerosis [Not Recovered/Not Resolved]
